FAERS Safety Report 25377337 (Version 1)
Quarter: 2025Q2

REPORT INFORMATION
  Report Type: Spontaneous
  Country: US (occurrence: US)
  Receive Date: 20250530
  Receipt Date: 20250530
  Transmission Date: 20250717
  Serious: No
  Sender: Haleon PLC
  Company Number: US-HALEON-2244566

PATIENT
  Age: 74 Year
  Sex: Female

DRUGS (1)
  1. TUMS CHEWY BITES [Suspect]
     Active Substance: CALCIUM CARBONATE
     Indication: Gastrooesophageal reflux disease

REACTIONS (2)
  - Oral discomfort [Recovered/Resolved]
  - Throat irritation [Recovered/Resolved]
